FAERS Safety Report 20784505 (Version 1)
Quarter: 2022Q2

REPORT INFORMATION
  Report Type: Spontaneous
  Country: FR (occurrence: FR)
  Receive Date: 20220504
  Receipt Date: 20220504
  Transmission Date: 20220721
  Serious: Yes (Hospitalization, Other)
  Sender: FDA-Public Use
  Company Number: FR-PFIZER INC-202200631719

PATIENT
  Age: 81 Year
  Sex: Female
  Weight: 80 kg

DRUGS (13)
  1. VYNDAQEL [Suspect]
     Active Substance: TAFAMIDIS MEGLUMINE
     Indication: Cardiovascular disorder
     Dosage: 20 MG, DAILY
  2. PREGABALIN [Concomitant]
     Active Substance: PREGABALIN
     Dosage: 75 MG + 100 MG
  3. PREGABALIN [Concomitant]
     Active Substance: PREGABALIN
     Dosage: 150 MG X 2
  4. PREGABALIN [Concomitant]
     Active Substance: PREGABALIN
     Dosage: 50 MG X 2
  5. XARELTO [Concomitant]
     Active Substance: RIVAROXABAN
  6. DOLIPRANE [Concomitant]
     Active Substance: ACETAMINOPHEN
     Dosage: IF NEEDED
     Dates: start: 20190807
  7. MORPHINE SULFATE [Concomitant]
     Active Substance: MORPHINE SULFATE
     Dosage: 5 MG IF NEEDED
     Dates: start: 20190807
  8. NEFOPAM [Concomitant]
     Active Substance: NEFOPAM
     Dosage: IF NEEDED
     Dates: start: 20190807
  9. LOVENOX [Concomitant]
     Active Substance: ENOXAPARIN SODIUM
     Dosage: 4000 0.4 ML
     Dates: start: 20190607
  10. GABAPENTIN [Concomitant]
     Active Substance: GABAPENTIN
     Dosage: 300 MG X 4
  11. CHOLECALCIFEROL [Concomitant]
     Active Substance: CHOLECALCIFEROL
     Dosage: 80 000 UI EVERY 15 DAYS
  12. APIXABAN [Concomitant]
     Active Substance: APIXABAN
     Dosage: 2.5 MG X 2
  13. APIXABAN [Concomitant]
     Active Substance: APIXABAN
     Dosage: 5MGX2

REACTIONS (5)
  - Fall [Unknown]
  - Fractured sacrum [Unknown]
  - Back pain [Unknown]
  - Epistaxis [Unknown]
  - Cardiac failure chronic [Unknown]

NARRATIVE: CASE EVENT DATE: 20190525
